FAERS Safety Report 8854092 (Version 2)
Quarter: 2012Q4

REPORT INFORMATION
  Report Type: Spontaneous
  Country: US (occurrence: None)
  Receive Date: 20121018
  Receipt Date: 20121226
  Transmission Date: 20130627
  Serious: Yes (Death, Other)
  Sender: FDA-Public Use
  Company Number: TPA2012A07714

PATIENT
  Age: 81 Year
  Sex: Male
  Weight: 72.58 kg

DRUGS (4)
  1. ACTOS [Suspect]
     Indication: TYPE 2 DIABETES MELLITUS
     Dates: start: 20010718, end: 20110216
  2. METFORMIN (METFORMIN) [Concomitant]
  3. GLUCOPHAGE (METFORMIN HYDROCHLORIDE) [Concomitant]
  4. GLUCOTROL (GLIPIZIDE) [Concomitant]

REACTIONS (1)
  - Bladder cancer [None]
